FAERS Safety Report 5952373-6 (Version None)
Quarter: 2008Q4

REPORT INFORMATION
  Report Type: 
  Country: None (occurrence: None)
  Receive Date: 20081113
  Receipt Date: 20081105
  Transmission Date: 20090506
  Serious: Yes (Hospitalization, Other)
  Sender: FDA-Public Use
  Company Number: US-ELI_LILLY_AND_COMPANY-US200811001357

PATIENT
  Sex: Female
  Weight: 122.45 kg

DRUGS (14)
  1. BYETTA [Suspect]
     Indication: TYPE 2 DIABETES MELLITUS
     Dosage: 5 UG, 2/D
     Route: 058
     Dates: start: 20080901, end: 20081001
  2. BYETTA [Suspect]
     Dosage: 10 UG, 2/D
     Route: 058
     Dates: start: 20081001, end: 20081001
  3. BYETTA [Suspect]
     Dosage: 10 UG, 2/D
     Route: 058
     Dates: start: 20081001
  4. STARLIX [Concomitant]
     Indication: TYPE 2 DIABETES MELLITUS
     Dosage: 120 MG, OTHER
     Route: 048
     Dates: end: 20080101
  5. STARLIX [Concomitant]
     Dosage: UNK, AS NEEDED
     Route: 048
     Dates: end: 20080101
  6. NEXIUM [Concomitant]
     Indication: ULCER
     Dosage: 40 MG, DAILY (1/D)
  7. XIFAXAN [Concomitant]
     Dosage: 600 MG, 2/D
  8. LEXAPRO [Concomitant]
     Indication: DEPRESSION
     Dosage: 10 MG, DAILY (1/D)
  9. NORVASC [Concomitant]
     Indication: BLOOD PRESSURE
     Dosage: UNK, DAILY (1/D)
  10. FEMARA [Concomitant]
     Indication: BREAST CANCER
     Dosage: 2.5 MG, DAILY (1/D)
  11. LASIX [Concomitant]
     Indication: DIURETIC THERAPY
     Dosage: 80 MG, DAILY (1/D)
     Dates: end: 20081001
  12. LASIX [Concomitant]
     Dosage: UNK, UNKNOWN
     Dates: start: 20081001
  13. SPIRONOLACTONE [Concomitant]
     Indication: DIURETIC THERAPY
     Dosage: 100 MG, DAILY (1/D)
  14. DIOVAN [Concomitant]
     Indication: BLOOD PRESSURE
     Dosage: 40 MG, DAILY (1/D)

REACTIONS (9)
  - BLOOD GLUCOSE INCREASED [None]
  - BLOOD URINE PRESENT [None]
  - CONFUSIONAL STATE [None]
  - DECREASED APPETITE [None]
  - DYSPNOEA [None]
  - FLUID RETENTION [None]
  - NAUSEA [None]
  - NIGHT SWEATS [None]
  - URINARY TRACT INFECTION [None]
